FAERS Safety Report 10526448 (Version 1)
Quarter: 2014Q4

REPORT INFORMATION
  Report Type: Spontaneous
  Country: US (occurrence: US)
  Receive Date: 20141020
  Receipt Date: 20141020
  Transmission Date: 20150528
  Serious: Yes (Other)
  Sender: FDA-Public Use
  Company Number: US-AMGEN-USASP2014079686

PATIENT
  Age: 58 Year
  Sex: Female

DRUGS (1)
  1. ENBREL [Suspect]
     Active Substance: ETANERCEPT
     Indication: RHEUMATOID ARTHRITIS
     Dosage: 50 MG, QWK
     Route: 065
     Dates: start: 20131212

REACTIONS (6)
  - Skin discolouration [Not Recovered/Not Resolved]
  - Varicose vein [Recovered/Resolved]
  - Limb operation [Recovered/Resolved]
  - Skin disorder [Unknown]
  - Procedural site reaction [Not Recovered/Not Resolved]
  - Dental operation [Recovered/Resolved]

NARRATIVE: CASE EVENT DATE: 201409
